FAERS Safety Report 23810015 (Version 1)
Quarter: 2024Q2

REPORT INFORMATION
  Report Type: Spontaneous
  Country: US (occurrence: US)
  Receive Date: 20240502
  Receipt Date: 20240502
  Transmission Date: 20240716
  Serious: Yes (Hospitalization, Disabling)
  Sender: FDA-Public Use
  Company Number: US-MLMSERVICE-20230515-4284579-1

PATIENT
  Age: 7 Year
  Sex: Male

DRUGS (4)
  1. DOXYCYCLINE [Suspect]
     Active Substance: DOXYCYCLINE
     Dosage: UNK
     Route: 065
  2. AMOXICILLIN [Suspect]
     Active Substance: AMOXICILLIN
     Indication: Lyme disease
     Dosage: UNK
     Route: 065
  3. CEFTRIAXONE [Concomitant]
     Active Substance: CEFTRIAXONE\CEFTRIAXONE SODIUM
     Indication: Evidence based treatment
     Dosage: 1 GRAM
     Route: 042
  4. CEFTRIAXONE [Concomitant]
     Active Substance: CEFTRIAXONE\CEFTRIAXONE SODIUM
     Dosage: 100 MILLIGRAM/KILOGRAM, QD
     Route: 042

REACTIONS (11)
  - Colour blindness [Not Recovered/Not Resolved]
  - Condition aggravated [Unknown]
  - Neurological symptom [Unknown]
  - Eye disorder [Unknown]
  - Optic neuritis [Recovered/Resolved]
  - Cranial nerve paralysis [Unknown]
  - Blindness [Not Recovered/Not Resolved]
  - Papilloedema [Recovered/Resolved]
  - Intracranial pressure increased [Not Recovered/Not Resolved]
  - Vision blurred [Not Recovered/Not Resolved]
  - Off label use [Unknown]
